FAERS Safety Report 17554858 (Version 1)
Quarter: 2020Q1

REPORT INFORMATION
  Report Type: Spontaneous
  Country: US (occurrence: US)
  Receive Date: 20200318
  Receipt Date: 20200318
  Transmission Date: 20200409
  Serious: No
  Sender: FDA-Public Use
  Company Number: US-PFIZER INC-2020112680

PATIENT
  Age: 35 Year
  Sex: Female

DRUGS (3)
  1. SOLU-MEDROL [Suspect]
     Active Substance: METHYLPREDNISOLONE SODIUM SUCCINATE
     Dosage: UNK
  2. LEMTRADA [Concomitant]
     Active Substance: ALEMTUZUMAB
     Indication: MULTIPLE SCLEROSIS
     Dosage: 12 MG FOR 5 CONSECUTIVE DAYS
     Route: 042
     Dates: start: 20180416, end: 20180420
  3. LEMTRADA [Concomitant]
     Active Substance: ALEMTUZUMAB
     Dosage: 12 MG FOR 3 CONSECUTIVE DAYS
     Route: 042
     Dates: start: 20200219, end: 20200221

REACTIONS (1)
  - Somnolence [Unknown]
